FAERS Safety Report 15426000 (Version 1)
Quarter: 2018Q3

REPORT INFORMATION
  Report Type: Spontaneous
  Country: DE (occurrence: DE)
  Receive Date: 20180925
  Receipt Date: 20180925
  Transmission Date: 20181010
  Serious: Yes (Death, Life-Threatening, Hospitalization, Congenital Anomaly, Other)
  Sender: FDA-Public Use
  Company Number: PHHY2018DE105984

PATIENT
  Sex: Male

DRUGS (5)
  1. BISOPROLOL [Concomitant]
     Active Substance: BISOPROLOL
     Indication: FOETAL EXPOSURE DURING PREGNANCY
     Dosage: MATERNAL DOSE 10 MG, QD
     Route: 064
  2. COTRIMOXAZOL [Concomitant]
     Active Substance: SULFAMETHOXAZOLE\TRIMETHOPRIM
     Dosage: UNK
     Route: 064
  3. LISIHEXAL [Suspect]
     Active Substance: LISINOPRIL
     Indication: FOETAL EXPOSURE DURING PREGNANCY
     Dosage: MATERNAL DOSE 1 ?G/L, QD
     Route: 064
  4. COTRIMOXAZOL [Concomitant]
     Active Substance: SULFAMETHOXAZOLE\TRIMETHOPRIM
     Indication: FOETAL EXPOSURE DURING PREGNANCY
     Dosage: UNK
     Route: 064
  5. COTRIMOXAZOL [Concomitant]
     Active Substance: SULFAMETHOXAZOLE\TRIMETHOPRIM
     Dosage: UNK
     Route: 064

REACTIONS (11)
  - Pulmonary hypoplasia [Fatal]
  - Pulmonary hypertension [Unknown]
  - Congenital foot malformation [Unknown]
  - Cataract congenital [Unknown]
  - Neonatal disorder [Unknown]
  - Pneumothorax [Unknown]
  - Neonatal anuria [Unknown]
  - Foetal exposure during pregnancy [Unknown]
  - Renal failure neonatal [Fatal]
  - Anomaly of external ear congenital [Unknown]
  - Renal aplasia [Unknown]

NARRATIVE: CASE EVENT DATE: 20180904
